FAERS Safety Report 4757035-9 (Version None)
Quarter: 2005Q3

REPORT INFORMATION
  Report Type: 
  Country: None (occurrence: None)
  Receive Date: 20050829
  Receipt Date: 20050829
  Transmission Date: 20060218
  Serious: Yes (Other)
  Sender: FDA-Public Use
  Company Number: None

PATIENT
  Age: 54 Year
  Sex: Male
  Weight: 68.6 kg

DRUGS (1)
  1. ETANERCEPT 25 MG LYPHOLIZED AMGEN [Suspect]
     Indication: RHEUMATOID ARTHRITIS
     Dosage: 25 MG TWICE WEEKLY SQ
     Route: 058
     Dates: start: 20031203, end: 20040430

REACTIONS (3)
  - CARDIAC FAILURE CONGESTIVE [None]
  - MASS [None]
  - MYCOBACTERIUM AVIUM COMPLEX INFECTION [None]
